FAERS Safety Report 21672908 (Version 1)
Quarter: 2022Q4

REPORT INFORMATION
  Report Type: Spontaneous
  Country: PT (occurrence: PT)
  Receive Date: 20221202
  Receipt Date: 20221202
  Transmission Date: 20230113
  Serious: Yes (Other)
  Sender: FDA-Public Use
  Company Number: None

PATIENT
  Age: 51 Year
  Sex: Female
  Weight: 75 kg

DRUGS (2)
  1. FLUOROURACIL [Suspect]
     Active Substance: FLUOROURACIL
     Indication: Rectal adenocarcinoma
     Dosage: FLUOROURACIL 5G/100ML SOL FOR IA/IV INJ. 720 MG (400 MG/M2 ) BOLUS
     Dates: start: 20220607, end: 20220705
  2. OXALIPLATIN [Suspect]
     Active Substance: OXALIPLATIN
     Indication: Rectal adenocarcinoma
     Dosage: OXALIPLATIN 100MG/20ML SOLUTION FOR IV INJECTION 114.8 MG (63.78 MG/M2) IN 5% GLUCOSE
     Dates: start: 20220607, end: 20220705

REACTIONS (1)
  - Hepatotoxicity [Unknown]

NARRATIVE: CASE EVENT DATE: 20220715
